FAERS Safety Report 9557929 (Version 1)
Quarter: 2013Q3

REPORT INFORMATION
  Report Type: Spontaneous
  Country: FR (occurrence: FR)
  Receive Date: 20130926
  Receipt Date: 20130926
  Transmission Date: 20140515
  Serious: Yes (Hospitalization)
  Sender: FDA-Public Use
  Company Number: FR-BRISTOL-MYERS SQUIBB COMPANY-19394394

PATIENT
  Age: 52 Year
  Sex: Female

DRUGS (8)
  1. HYDREA CAPS 500 MG [Suspect]
     Route: 048
     Dates: start: 20121016, end: 20130430
  2. PEGASYS [Suspect]
     Dosage: STOP DATE:01JUN2013
     Route: 058
     Dates: start: 20130215, end: 20130601
  3. DUOPLAVIN [Concomitant]
  4. AMLOR [Concomitant]
  5. CELIPROLOL HCL [Concomitant]
  6. TENORMINE [Concomitant]
  7. KARDEGIC [Concomitant]
  8. ZYLORIC [Concomitant]

REACTIONS (2)
  - Coronary artery dissection [Recovering/Resolving]
  - Off label use [Unknown]
